FAERS Safety Report 16639907 (Version 1)
Quarter: 2019Q3

REPORT INFORMATION
  Report Type: Spontaneous
  Country: GB (occurrence: GB)
  Receive Date: 20190727
  Receipt Date: 20190727
  Transmission Date: 20191004
  Serious: Yes (Hospitalization)
  Sender: FDA-Public Use
  Company Number: GB-ACCORD-149140

PATIENT
  Age: 83 Year
  Sex: Female

DRUGS (5)
  1. DONEPEZIL/DONEPEZIL HYDROCHLORIDE [Suspect]
     Active Substance: DONEPEZIL HYDROCHLORIDE
     Indication: DEMENTIA ALZHEIMER^S TYPE
     Dosage: NIGHT
     Route: 048
     Dates: start: 20190512
  2. GLYCOPYRRONIUM [Concomitant]
     Active Substance: GLYCOPYRRONIUM
  3. ADCAL-D3 [Concomitant]
     Active Substance: CALCIUM CARBONATE\CHOLECALCIFEROL
  4. ENOXAPARIN [Concomitant]
     Active Substance: ENOXAPARIN
  5. GLICLAZIDE [Concomitant]
     Active Substance: GLICLAZIDE

REACTIONS (3)
  - Hypotension [Recovered/Resolved]
  - Sinus bradycardia [Recovered/Resolved]
  - Circulatory collapse [Recovered/Resolved]

NARRATIVE: CASE EVENT DATE: 20190527
